FAERS Safety Report 5479412-3 (Version None)
Quarter: 2007Q4

REPORT INFORMATION
  Report Type: 
  Country: None (occurrence: None)
  Receive Date: 20071008
  Receipt Date: 20071002
  Transmission Date: 20080405
  Serious: Yes (Other)
  Sender: FDA-Public Use
  Company Number: GB-ALLERGAN-0710787US

PATIENT
  Sex: Male

DRUGS (2)
  1. COMBIGAN [Suspect]
     Indication: PIGMENTARY GLAUCOMA
     Route: 047
     Dates: start: 20060101, end: 20070918
  2. XALATAN [Concomitant]
     Indication: PIGMENTARY GLAUCOMA
     Route: 047
     Dates: start: 19971101

REACTIONS (4)
  - BLINDNESS [None]
  - CONJUNCTIVAL HYPERAEMIA [None]
  - GLAUCOMA [None]
  - INTRAOCULAR PRESSURE INCREASED [None]
